FAERS Safety Report 22380908 (Version 1)
Quarter: 2023Q2

REPORT INFORMATION
  Report Type: Spontaneous
  Country: DE (occurrence: DE)
  Receive Date: 20230530
  Receipt Date: 20230530
  Transmission Date: 20230722
  Serious: Yes (Other)
  Sender: FDA-Public Use
  Company Number: DE-ABBVIE-5177792

PATIENT
  Age: 77 Year
  Sex: Female

DRUGS (3)
  1. VENETOCLAX [Suspect]
     Active Substance: VENETOCLAX
     Indication: Myelodysplastic syndrome
     Route: 048
     Dates: start: 202201, end: 202207
  2. VENETOCLAX [Suspect]
     Active Substance: VENETOCLAX
     Indication: Myelodysplastic syndrome
     Route: 048
     Dates: start: 202210
  3. Azathioprine. [Concomitant]
     Indication: Product used for unknown indication

REACTIONS (5)
  - Myelodysplastic syndrome [Unknown]
  - Off label use [Not Recovered/Not Resolved]
  - Cytopenia [Not Recovered/Not Resolved]
  - Blast cell count increased [Unknown]
  - Acute myeloid leukaemia [Unknown]

NARRATIVE: CASE EVENT DATE: 20220101
